FAERS Safety Report 7456150-9 (Version None)
Quarter: 2011Q2

REPORT INFORMATION
  Report Type: 
  Country: None (occurrence: None)
  Receive Date: 20110503
  Receipt Date: 20091119
  Transmission Date: 20111010
  Serious: Yes (Death, Other)
  Sender: FDA-Public Use
  Company Number: US-BAYER-200939924NA

PATIENT
  Age: 71 Year
  Sex: Female
  Weight: 58.957 kg

DRUGS (8)
  1. TRASYLOL [Suspect]
     Indication: CORONARY ARTERY BYPASS
     Dosage: UNK
     Route: 042
     Dates: start: 19990922, end: 19990922
  2. LASIX [Concomitant]
     Dosage: 20 MG, QD
     Route: 042
     Dates: start: 19990922, end: 19990922
  3. LEVOPHED [Concomitant]
     Dosage: UNK
     Route: 042
     Dates: start: 19990922, end: 19990922
  4. GENTAMICIN [Concomitant]
     Dosage: 80 MG, UNK
     Route: 042
     Dates: start: 19990922, end: 19990922
  5. HEPARIN [Concomitant]
     Dosage: 30000 U, UNK
     Route: 042
  6. ANCEF [Concomitant]
     Dosage: 1 G, UNK
     Route: 042
     Dates: start: 19990922, end: 19990922
  7. PLAVIX [Concomitant]
     Route: 048
  8. VANCOMYCIN [Concomitant]
     Dosage: 1 G, UNK
     Route: 042
     Dates: start: 19990922, end: 19990922

REACTIONS (14)
  - MULTI-ORGAN FAILURE [None]
  - FEAR [None]
  - RENAL IMPAIRMENT [None]
  - EMOTIONAL DISTRESS [None]
  - UNEVALUABLE EVENT [None]
  - STRESS [None]
  - ANXIETY [None]
  - DEATH [None]
  - CEREBROVASCULAR ACCIDENT [None]
  - RENAL FAILURE [None]
  - RENAL INJURY [None]
  - PAIN [None]
  - ANHEDONIA [None]
  - INJURY [None]
